FAERS Safety Report 5129220-8 (Version None)
Quarter: 2006Q4

REPORT INFORMATION
  Report Type: 
  Country: None (occurrence: None)
  Receive Date: 20061004
  Receipt Date: 20060929
  Transmission Date: 20070319
  Serious: Yes (Life-Threatening, Hospitalization)
  Sender: FDA-Public Use
  Company Number: 200610738

PATIENT
  Age: 70 Year
  Sex: Female

DRUGS (7)
  1. SANDOGLOBULIN [Suspect]
     Indication: NEURITIS
     Dosage: 22 G DAILY IV
     Route: 042
     Dates: start: 20060905, end: 20060908
  2. SANDOGLOBULIN [Suspect]
     Indication: RADICULOPATHY
     Dosage: 22 G DAILY IV
     Route: 042
     Dates: start: 20060905, end: 20060908
  3. SANDOGLOBULIN [Suspect]
  4. SANDOGLOBULIN [Suspect]
  5. SANDOGLOBULIN [Suspect]
  6. SANDOGLOBULIN [Suspect]
  7. SANDOGLOBULIN [Suspect]

REACTIONS (16)
  - BACTERIAL INFECTION [None]
  - BLOOD CULTURE POSITIVE [None]
  - BLOOD PRESSURE DECREASED [None]
  - CULTURE URINE POSITIVE [None]
  - DIARRHOEA [None]
  - DISSEMINATED INTRAVASCULAR COAGULATION [None]
  - HAEMODIALYSIS [None]
  - HEPATIC FAILURE [None]
  - INFLAMMATION [None]
  - LUNG DISORDER [None]
  - MULTI-ORGAN FAILURE [None]
  - PETECHIAE [None]
  - RENAL FAILURE [None]
  - RENAL FAILURE ACUTE [None]
  - SEPSIS [None]
  - VOMITING [None]
